FAERS Safety Report 7390918-2 (Version None)
Quarter: 2011Q2

REPORT INFORMATION
  Report Type: 
  Country: None (occurrence: None)
  Receive Date: 20110404
  Receipt Date: 20110329
  Transmission Date: 20111010
  Serious: No
  Sender: FDA-Public Use
  Company Number: 181864

PATIENT
  Sex: Female

DRUGS (2)
  1. AVONEX [Suspect]
     Indication: MULTIPLE SCLEROSIS
     Route: 030
     Dates: start: 20081201
  2. AVONEX [Suspect]
     Route: 030
     Dates: start: 19950501, end: 20080202

REACTIONS (5)
  - HYPERSENSITIVITY [None]
  - TREMOR [None]
  - CHILLS [None]
  - PAIN [None]
  - HEADACHE [None]
